FAERS Safety Report 11134622 (Version 3)
Quarter: 2018Q1

REPORT INFORMATION
  Report Type: Report from Study
  Country: US (occurrence: US)
  Receive Date: 20150525
  Receipt Date: 20180327
  Transmission Date: 20180508
  Serious: Yes (Hospitalization)
  Sender: FDA-Public Use
  Company Number: US-ROCHE-1580264

PATIENT
  Age: 42 Year
  Sex: Male

DRUGS (16)
  1. CYANOCOBALAMIN. [Concomitant]
     Active Substance: CYANOCOBALAMIN
     Route: 065
     Dates: start: 20120517
  2. OMEGA-3 TRIGLYCERIDES [Concomitant]
     Route: 065
     Dates: start: 20120517, end: 20121022
  3. ONDANSETRON [Concomitant]
     Active Substance: ONDANSETRON
     Route: 065
     Dates: start: 20120329, end: 20120412
  4. OXYCODONE [Concomitant]
     Active Substance: OXYCODONE
     Route: 065
     Dates: start: 20120301, end: 20120412
  5. 5-FU [Suspect]
     Active Substance: FLUOROURACIL
     Indication: METASTATIC GASTRIC CANCER
     Dosage: LAST DOSE RECEIVED ON 24/MAY/2012
     Route: 065
     Dates: start: 20120301
  6. APREPITANT. [Concomitant]
     Active Substance: APREPITANT
     Route: 065
     Dates: start: 20120329, end: 20120517
  7. ATORVASTATIN [Concomitant]
     Active Substance: ATORVASTATIN
     Route: 065
     Dates: start: 20120301, end: 20120412
  8. CISPLATIN. [Suspect]
     Active Substance: CISPLATIN
     Indication: METASTATIC GASTRIC CANCER
     Dosage: LAST DOSE RECEIVED ON 24/MAY/2012
     Route: 065
     Dates: start: 20120301
  9. LEUCOVORIN. [Suspect]
     Active Substance: LEUCOVORIN
     Indication: METASTATIC GASTRIC CANCER
     Dosage: LAST DOSE RECEIVED ON 24/MAY/2012
     Route: 065
     Dates: start: 20120301
  10. ASPIRIN. [Concomitant]
     Active Substance: ASPIRIN
     Route: 065
     Dates: start: 20120414, end: 20120522
  11. TRASTUZUMAB. [Suspect]
     Active Substance: TRASTUZUMAB
     Indication: METASTATIC GASTRIC CANCER
     Dosage: LAST DOSE RECEIVED ON 24/MAY/2012
     Route: 065
     Dates: start: 20120301
  12. DEXAMETHASONE. [Concomitant]
     Active Substance: DEXAMETHASONE
     Route: 065
     Dates: start: 20120329, end: 20120517
  13. DOCETAXEL. [Suspect]
     Active Substance: DOCETAXEL
     Indication: METASTATIC GASTRIC CANCER
     Dosage: LAST DOSE RECEIVED ON 24/MAY/2012
     Route: 065
     Dates: start: 20120301
  14. ACETAMINOPHEN. [Concomitant]
     Active Substance: ACETAMINOPHEN
     Route: 065
     Dates: start: 20120301, end: 20120412
  15. CALCIUM ACETATE. [Concomitant]
     Active Substance: CALCIUM ACETATE
     Route: 065
     Dates: start: 20120517
  16. NADOLOL. [Concomitant]
     Active Substance: NADOLOL
     Route: 065
     Dates: start: 20120412

REACTIONS (10)
  - Gastrointestinal haemorrhage [Unknown]
  - Embolism [Recovered/Resolved]
  - Left ventricular dysfunction [Recovered/Resolved]
  - Neutropenia [Unknown]
  - White blood cell count [Recovered/Resolved]
  - Thrombosis [Recovered/Resolved]
  - Viral infection [Recovered/Resolved]
  - Anaemia [Unknown]
  - Neutrophil count decreased [Recovered/Resolved]
  - Dehydration [Unknown]

NARRATIVE: CASE EVENT DATE: 20120516
